FAERS Safety Report 6170955-6 (Version None)
Quarter: 2009Q2

REPORT INFORMATION
  Report Type: 
  Country: None (occurrence: None)
  Receive Date: 20090427
  Receipt Date: 20090427
  Transmission Date: 20091009
  Serious: Yes (Hospitalization)
  Sender: FDA-Public Use
  Company Number: None

PATIENT
  Age: 69 Year
  Sex: Male
  Weight: 88 kg

DRUGS (10)
  1. WARFARIN SODIUM [Suspect]
     Indication: ATRIAL FIBRILLATION
     Dosage: 2.5MG/ 5MG PO ON ALT DAYS
     Route: 048
  2. ALLOPURINOL [Concomitant]
  3. ASPIRIN [Concomitant]
  4. BUMETANIDE [Concomitant]
  5. CARVEDILOL [Concomitant]
  6. ENALAPRIL MALEATE [Concomitant]
  7. GLYBURIDE [Concomitant]
  8. KLOR-CON [Concomitant]
  9. MILRINONE [Concomitant]
  10. SPIRONOLACTONE [Concomitant]

REACTIONS (4)
  - AZOTAEMIA [None]
  - CARDIAC FAILURE [None]
  - HYPERKALAEMIA [None]
  - INTERNATIONAL NORMALISED RATIO INCREASED [None]
